FAERS Safety Report 9078296 (Version 1)
Quarter: 2013Q1

REPORT INFORMATION
  Report Type: Report from Study
  Country: US (occurrence: US)
  Receive Date: 20130130
  Receipt Date: 20130130
  Transmission Date: 20140127
  Serious: Yes (Hospitalization)
  Sender: FDA-Public Use
  Company Number: US-ABBOTT-12P-163-0959279-00

PATIENT
  Age: 52 Year
  Sex: Male

DRUGS (1)
  1. HUMIRA 40 MG/0.8 ML PEN [Suspect]
     Indication: PSORIASIS
     Dates: start: 20120607, end: 20120628

REACTIONS (5)
  - Abscess [Recovering/Resolving]
  - Staphylococcal infection [Recovering/Resolving]
  - Headache [Unknown]
  - Hypertension [Unknown]
  - Gait disturbance [Unknown]
